FAERS Safety Report 4494110-0 (Version None)
Quarter: 2004Q4

REPORT INFORMATION
  Report Type: 
  Country: None (occurrence: None)
  Receive Date: 20041105
  Receipt Date: 20041028
  Transmission Date: 20050328
  Serious: Yes (Life-Threatening, Hospitalization, Disabling)
  Sender: FDA-Public Use
  Company Number: US-MERCK-0410USA04381

PATIENT
  Age: 62 Year
  Sex: Female

DRUGS (8)
  1. VIOXX [Suspect]
     Indication: OSTEOARTHRITIS
     Route: 048
     Dates: start: 20020701, end: 20040930
  2. ATENOLOL [Concomitant]
     Route: 065
  3. ESTRADIOL [Concomitant]
     Route: 065
  4. [THERAPY UNSPECIFIED] [Concomitant]
     Route: 065
  5. PROTONIX [Concomitant]
     Route: 065
  6. POTASSIUM (UNSPECIFIED) [Concomitant]
     Route: 065
  7. ACYCLOVIR [Concomitant]
     Route: 065
  8. TYLENOL W/ CODEINE NO. 3 [Concomitant]
     Route: 065

REACTIONS (3)
  - DYSPNOEA [None]
  - MYOCARDIAL INFARCTION [None]
  - PHYSICAL DISABILITY [None]
